FAERS Safety Report 23529808 (Version 1)
Quarter: 2024Q1

REPORT INFORMATION
  Report Type: Spontaneous
  Country: US (occurrence: US)
  Receive Date: 20240216
  Receipt Date: 20240216
  Transmission Date: 20240409
  Serious: No
  Sender: FDA-Public Use
  Company Number: US-OTSUKA-2022_054733

PATIENT
  Age: 243 Day
  Sex: Male

DRUGS (8)
  1. BUSULFAN [Suspect]
     Active Substance: BUSULFAN
     Indication: Stem cell transplant
     Dosage: UNK
     Route: 065
  2. BUSULFAN [Suspect]
     Active Substance: BUSULFAN
     Indication: Neuroblastoma
  3. MELPHALAN [Concomitant]
     Active Substance: MELPHALAN
     Indication: Stem cell transplant
     Dosage: UNK
     Route: 065
  4. MELPHALAN [Concomitant]
     Active Substance: MELPHALAN
     Indication: Neuroblastoma
  5. CISPLATIN [Concomitant]
     Active Substance: CISPLATIN
     Indication: Chemotherapy
     Dosage: UNK
     Route: 065
  6. VINCRISTINE [Concomitant]
     Active Substance: VINCRISTINE
     Indication: Chemotherapy
     Dosage: UNK
     Route: 065
  7. CARBOPLATIN [Concomitant]
     Active Substance: CARBOPLATIN
     Indication: Chemotherapy
     Dosage: UNK
     Route: 065
  8. CYCLOPHOSPHAMIDE [Concomitant]
     Active Substance: CYCLOPHOSPHAMIDE
     Indication: Chemotherapy
     Dosage: UNK
     Route: 065

REACTIONS (1)
  - Product used for unknown indication [Unknown]
